FAERS Safety Report 15802378 (Version 1)
Quarter: 2019Q1

REPORT INFORMATION
  Report Type: Spontaneous
  Country: US (occurrence: US)
  Receive Date: 20190104
  Receipt Date: 20190104
  Transmission Date: 20190417
  Serious: No
  Sender: FDA-Public Use
  Company Number: None

PATIENT

DRUGS (5)
  1. LABETALOL [Suspect]
     Active Substance: LABETALOL\LABETALOL HYDROCHLORIDE
  2. HEPARIN [Suspect]
     Active Substance: HEPARIN SODIUM
  3. HYDROMORPHONE 1MG/ML [Suspect]
     Active Substance: HYDROMORPHONE
  4. MORPHINE 2MG/ML CARPUJECT [Suspect]
     Active Substance: MORPHINE
  5. LORAZEPAM 2MG/ML CARPUJECT [Suspect]
     Active Substance: LORAZEPAM

REACTIONS (4)
  - Device issue [None]
  - Product contamination physical [None]
  - Product supply issue [None]
  - Circumstance or information capable of leading to device use error [None]
